FAERS Safety Report 8785638 (Version 1)
Quarter: 2012Q4

REPORT INFORMATION
  Report Type: Spontaneous
  Country: US (occurrence: None)
  Receive Date: 20120904
  Receipt Date: 20120904
  Transmission Date: 20130627
  Serious: Yes (Hospitalization)
  Sender: FDA-Public Use
  Company Number: 110411-000034

PATIENT
  Age: 21 Year
  Sex: Female

DRUGS (3)
  1. PROACTIV CLEANSER [Suspect]
     Indication: ACNE
     Dosage: once dermal
     Dates: start: 20110407
  2. REPAIRING TREATMENT [Suspect]
     Dosage: once dermal
     Dates: start: 20110407
  3. REFINING MASK [Suspect]
     Dosage: once dermal
     Dates: start: 20110407

REACTIONS (3)
  - Swelling face [None]
  - Throat tightness [None]
  - Dyspnoea [None]
